FAERS Safety Report 19740272 (Version 1)
Quarter: 2021Q3

REPORT INFORMATION
  Report Type: Spontaneous
  Country: CN (occurrence: CN)
  Receive Date: 20210823
  Receipt Date: 20210823
  Transmission Date: 20211014
  Serious: Yes (Other)
  Sender: FDA-Public Use
  Company Number: CN-ROCHE-2891779

PATIENT
  Age: 84 Year
  Sex: Male
  Weight: 52.5 kg

DRUGS (5)
  1. SODIUM CHLORIDE. [Concomitant]
     Active Substance: SODIUM CHLORIDE
     Route: 041
     Dates: start: 20210710
  2. RECOMBINANT HUMAN THROMBOPOIETIN [Concomitant]
     Active Substance: THROMBOPOIETIN
     Dosage: DF=U
     Route: 058
     Dates: start: 202107
  3. SODIUM CHLORIDE. [Concomitant]
     Active Substance: SODIUM CHLORIDE
     Route: 041
     Dates: start: 20210710
  4. PEMBROLIZUMAB. [Suspect]
     Active Substance: PEMBROLIZUMAB
     Indication: HEPATIC CANCER
     Route: 041
     Dates: start: 20210710
  5. AVASTIN [Suspect]
     Active Substance: BEVACIZUMAB
     Indication: HEPATIC CANCER
     Route: 041
     Dates: start: 20210710

REACTIONS (3)
  - Platelet count decreased [Recovered/Resolved]
  - Off label use [Unknown]
  - White blood cell count decreased [Recovered/Resolved]

NARRATIVE: CASE EVENT DATE: 20210713
